FAERS Safety Report 15371143 (Version 1)
Quarter: 2018Q3

REPORT INFORMATION
  Report Type: Spontaneous
  Country: ZA (occurrence: ZA)
  Receive Date: 20180911
  Receipt Date: 20180911
  Transmission Date: 20181010
  Serious: Yes (Other)
  Sender: FDA-Public Use
  Company Number: ZA-BAXTER-2018BAX023387

PATIENT
  Sex: Female

DRUGS (1)
  1. ENDOXAN VIAL 1G [Suspect]
     Active Substance: CYCLOPHOSPHAMIDE
     Indication: PRODUCT USED FOR UNKNOWN INDICATION
     Dosage: STRENGTH DISCREPANTLY REPORTED AS 400 MG; IVI (INTRAVENOUS INFUSION)
     Route: 042
     Dates: start: 201410, end: 201503

REACTIONS (1)
  - Drug ineffective [Unknown]
